FAERS Safety Report 6861130-8 (Version None)
Quarter: 2010Q3

REPORT INFORMATION
  Report Type: 
  Country: None (occurrence: None)
  Receive Date: 20100720
  Receipt Date: 20100708
  Transmission Date: 20110219
  Serious: Yes (Other)
  Sender: FDA-Public Use
  Company Number: BR-PFIZER INC-2010077529

PATIENT
  Age: 50 Year
  Sex: Female
  Weight: 76 kg

DRUGS (5)
  1. CHAMPIX [Suspect]
     Dosage: 1 MG, 2X/DAY, EVERY 12 HOURS
     Route: 048
     Dates: start: 20100101
  2. CHAMPIX [Suspect]
     Dosage: 0.5 MG, 2X/DAY (EVERY 12 HOURS)
     Route: 048
     Dates: start: 20100101
  3. CHAMPIX [Suspect]
     Dosage: UNK
     Route: 048
     Dates: start: 20100610, end: 20100601
  4. RIVOTRIL [Concomitant]
     Indication: PANIC DISORDER
     Dosage: 2 MG, 1X/DAY, AT NIGHT
  5. RIVOTRIL [Concomitant]
     Indication: ANXIETY

REACTIONS (1)
  - NERVOUSNESS [None]
